FAERS Safety Report 6289261-4 (Version None)
Quarter: 2009Q3

REPORT INFORMATION
  Report Type: 
  Country: None (occurrence: None)
  Receive Date: 20090729
  Receipt Date: 20080403
  Transmission Date: 20100115
  Serious: Yes (Other)
  Sender: FDA-Public Use
  Company Number: US-ASTRAZENECA-2007UW25215

PATIENT
  Age: 684 Month
  Sex: Female
  Weight: 81.6 kg

DRUGS (16)
  1. SEROQUEL [Suspect]
     Indication: DEPRESSION
     Route: 048
     Dates: start: 20010201, end: 20011101
  2. SEROQUEL [Suspect]
     Indication: BIPOLAR DISORDER
     Route: 048
     Dates: start: 20010201, end: 20011101
  3. SEROQUEL [Suspect]
     Route: 048
     Dates: start: 20010520
  4. SEROQUEL [Suspect]
     Route: 048
     Dates: start: 20010520
  5. ZOLOFT [Concomitant]
     Dosage: 15 MG QAM, 200 MG QHS
     Dates: start: 20010520
  6. DEPAKOTE [Concomitant]
     Dates: start: 20010520
  7. PREVACID [Concomitant]
     Indication: GASTROINTESTINAL DISORDER
     Dosage: 30 MG QAM, 30 MG QD
     Dates: start: 20010520
  8. NEURONTIN [Concomitant]
     Dates: start: 20021130
  9. WELLBUTRIN [Concomitant]
     Dates: start: 20021130
  10. AMBIEN [Concomitant]
     Dates: start: 20000424
  11. AMITRIPTYLINE HCL [Concomitant]
     Dosage: 25-75 MG
     Dates: start: 20010520
  12. TRAZODONE HCL [Concomitant]
     Dates: start: 20050510
  13. TRICOR [Concomitant]
     Dosage: 145 MG QHS
     Dates: start: 20050510
  14. REMERON [Concomitant]
     Dosage: 30 MG QHS
     Route: 048
     Dates: start: 20010520
  15. PREMARIN [Concomitant]
     Dates: start: 20000424
  16. CELEBREX [Concomitant]
     Route: 048
     Dates: start: 20010520

REACTIONS (3)
  - DIABETES MELLITUS [None]
  - HYPERGLYCAEMIA [None]
  - POLYNEUROPATHY [None]
